FAERS Safety Report 9013538 (Version 1)
Quarter: 2012Q4

REPORT INFORMATION
  Report Type: Spontaneous
  Country: GB (occurrence: None)
  Receive Date: 20121231
  Receipt Date: 20121231
  Transmission Date: 20130627
  Serious: Yes (Disabling)
  Sender: FDA-Public Use
  Company Number: AUR-APL-2012-05557

PATIENT
  Age: 81 Year
  Sex: Male
  Weight: 73 kg

DRUGS (10)
  1. RAMIPRIL (RAMIPRIL) [Suspect]
     Indication: ATRIAL FIBRILLATION
     Route: 048
     Dates: start: 20121109
  2. ASACOL MR (MESALAZINE) [Concomitant]
  3. ATORVASTATIN (ATORVASTATIN) [Concomitant]
  4. BISOPROLOL (BISOPROLOL) [Concomitant]
  5. CLOPIDOGREL (CLOPIDOGREL) [Concomitant]
  6. EPILIM CHRONO (VALPROATE SODIUM) [Concomitant]
  7. PARACETAMOL (PARACETAMOL) [Concomitant]
  8. PREDNISOLONE (PREDNISOLONE) [Concomitant]
  9. RANITIDINE (RANITIDINE) [Concomitant]
  10. WARFARIN (WARFARIN) [Concomitant]

REACTIONS (4)
  - Fatigue [None]
  - Myalgia [None]
  - Pain in extremity [None]
  - Paraesthesia [None]
